FAERS Safety Report 5940906-5 (Version None)
Quarter: 2008Q4

REPORT INFORMATION
  Report Type: 
  Country: None (occurrence: None)
  Receive Date: 20081104
  Receipt Date: 20081021
  Transmission Date: 20090506
  Serious: Yes (Other)
  Sender: FDA-Public Use
  Company Number: US-ELI_LILLY_AND_COMPANY-US200810005256

PATIENT
  Sex: Female
  Weight: 137.87 kg

DRUGS (8)
  1. BYETTA [Suspect]
     Indication: TYPE 2 DIABETES MELLITUS
     Dosage: 5 UG, 2/D
     Route: 058
     Dates: start: 20070301, end: 20070301
  2. BYETTA [Suspect]
     Dosage: 10 UG, 2/D
     Route: 058
     Dates: start: 20070301
  3. GLIPIZIDE [Concomitant]
     Indication: TYPE 2 DIABETES MELLITUS
     Dosage: 5 MG, 2/D
     Route: 048
  4. METFORMIN HCL [Concomitant]
     Indication: TYPE 2 DIABETES MELLITUS
     Dosage: UNK, 2/D
     Route: 048
  5. ANTI-DIABETICS [Concomitant]
     Indication: TYPE 2 DIABETES MELLITUS
     Dosage: UNK, 2/D
     Route: 048
  6. LASIX [Concomitant]
     Dosage: 20 MG, DAILY (1/D)
     Route: 048
  7. ZOCOR [Concomitant]
     Dosage: 20 MG, DAILY (1/D)
     Route: 048
  8. MONOPRIL [Concomitant]
     Dosage: 10 MG, DAILY (1/D)
     Route: 048

REACTIONS (11)
  - ABDOMINAL PAIN LOWER [None]
  - ADRENAL MASS [None]
  - CHOLELITHIASIS [None]
  - DIABETIC FOOT [None]
  - EARLY SATIETY [None]
  - NAUSEA [None]
  - RENAL CYST [None]
  - UTERINE DISORDER [None]
  - VISUAL ACUITY REDUCED [None]
  - VOMITING [None]
  - WEIGHT DECREASED [None]
